FAERS Safety Report 25740450 (Version 1)
Quarter: 2025Q3

REPORT INFORMATION
  Report Type: Spontaneous
  Country: EU (occurrence: EU)
  Receive Date: 20250829
  Receipt Date: 20250829
  Transmission Date: 20251021
  Serious: Yes (Hospitalization)
  Sender: MYLAN
  Company Number: None

PATIENT
  Age: 34 Year
  Sex: Female

DRUGS (4)
  1. METHOTREXATE [Suspect]
     Active Substance: METHOTREXATE
     Indication: Ectopic pregnancy
     Dates: start: 20250612, end: 20250612
  2. METHOTREXATE [Suspect]
     Active Substance: METHOTREXATE
     Route: 030
     Dates: start: 20250612, end: 20250612
  3. METHOTREXATE [Suspect]
     Active Substance: METHOTREXATE
     Route: 030
     Dates: start: 20250612, end: 20250612
  4. METHOTREXATE [Suspect]
     Active Substance: METHOTREXATE
     Dates: start: 20250612, end: 20250612

REACTIONS (2)
  - Salpingectomy [Recovered/Resolved with Sequelae]
  - Drug ineffective [Recovered/Resolved with Sequelae]

NARRATIVE: CASE EVENT DATE: 20250701
